FAERS Safety Report 19126505 (Version 1)
Quarter: 2021Q2

REPORT INFORMATION
  Report Type: Spontaneous
  Country: US (occurrence: US)
  Receive Date: 20210413
  Receipt Date: 20210413
  Transmission Date: 20210717
  Serious: Yes (Hospitalization, Other)
  Sender: FDA-Public Use
  Company Number: US-HIKMA PHARMACEUTICALS USA INC.-US-H14001-21-01748

PATIENT
  Age: 45 Year
  Sex: Male

DRUGS (14)
  1. RITUXIMAB. [Suspect]
     Active Substance: RITUXIMAB
     Indication: PRODUCT USED FOR UNKNOWN INDICATION
     Dosage: UNKNOWN
     Route: 065
  2. RUXOLITINIB [Concomitant]
     Active Substance: RUXOLITINIB
     Indication: PULMONARY ALVEOLAR HAEMORRHAGE
  3. REGENERON [Concomitant]
     Active Substance: UNSPECIFIED INGREDIENT
     Indication: PULMONARY ALVEOLAR HAEMORRHAGE
     Dosage: UNKNOWN
     Route: 065
  4. REGENERON [Concomitant]
     Active Substance: UNSPECIFIED INGREDIENT
     Indication: RESPIRATORY DEPRESSION
  5. REMDESIVIR. [Suspect]
     Active Substance: REMDESIVIR
     Indication: COVID-19
     Dosage: UNKNOWN
     Route: 065
  6. IMMUNOGLOBULIN NOS [Concomitant]
     Active Substance: IMMUNE GLOBULIN NOS
     Indication: RESPIRATORY DEPRESSION
     Dosage: UNKNOWN
     Route: 042
  7. REMDESIVIR. [Suspect]
     Active Substance: REMDESIVIR
     Dosage: UNKNOWN
     Route: 065
  8. CYCLOPHOSPHAMIDE. [Suspect]
     Active Substance: CYCLOPHOSPHAMIDE
     Indication: PRODUCT USED FOR UNKNOWN INDICATION
     Dosage: UNKNOWN
     Route: 065
  9. CYCLOPHOSPHAMIDE. [Concomitant]
     Active Substance: CYCLOPHOSPHAMIDE
     Indication: PULMONARY ALVEOLAR HAEMORRHAGE
  10. REMDESIVIR. [Suspect]
     Active Substance: REMDESIVIR
     Dosage: UNKNOWN
     Route: 065
  11. IMMUNOGLOBULIN NOS [Concomitant]
     Active Substance: IMMUNE GLOBULIN NOS
     Indication: PULMONARY ALVEOLAR HAEMORRHAGE
  12. RUXOLITINIB [Concomitant]
     Active Substance: RUXOLITINIB
     Indication: RESPIRATORY DEPRESSION
     Dosage: UNKNOWN
     Route: 065
  13. ECULIZUMAB [Suspect]
     Active Substance: ECULIZUMAB
     Indication: PRODUCT USED FOR UNKNOWN INDICATION
     Dosage: UNKNOWN
     Route: 065
  14. CYCLOPHOSPHAMIDE. [Concomitant]
     Active Substance: CYCLOPHOSPHAMIDE
     Indication: RESPIRATORY DEPRESSION
     Dosage: UNKNOWN
     Route: 042

REACTIONS (2)
  - Viral mutation identified [Unknown]
  - COVID-19 [Unknown]
